FAERS Safety Report 20595631 (Version 2)
Quarter: 2022Q2

REPORT INFORMATION
  Report Type: Report from Study
  Country: FR (occurrence: None)
  Receive Date: 20220315
  Receipt Date: 20220414
  Transmission Date: 20220720
  Serious: Yes (Death)
  Sender: FDA-Public Use
  Company Number: 2022A107277

PATIENT
  Age: 764 Month
  Sex: Male
  Weight: 62 kg

DRUGS (4)
  1. EVUSHELD [Suspect]
     Active Substance: CILGAVIMAB\TIXAGEVIMAB
     Indication: Prophylaxis
     Route: 030
     Dates: start: 20220117
  2. TACROLIMUS [Concomitant]
     Active Substance: TACROLIMUS
     Route: 065
  3. CELLCEPT [Concomitant]
     Active Substance: MYCOPHENOLATE MOFETIL
     Route: 065
  4. PREDNISONE [Concomitant]
     Active Substance: PREDNISONE
     Route: 065

REACTIONS (2)
  - Pneumonia respiratory syncytial viral [Fatal]
  - Product use issue [Unknown]

NARRATIVE: CASE EVENT DATE: 20220117
